FAERS Safety Report 6064435-6 (Version None)
Quarter: 2009Q1

REPORT INFORMATION
  Report Type: 
  Country: None (occurrence: None)
  Receive Date: 20090130
  Receipt Date: 20090126
  Transmission Date: 20090719
  Serious: Yes (Death)
  Sender: FDA-Public Use
  Company Number: 2009AL000368

PATIENT
  Age: 23 Year
  Sex: Male

DRUGS (1)
  1. DIGOXIN [Suspect]
     Indication: CARDIAC DISORDER
     Dosage: UNK UNK PO
     Route: 048

REACTIONS (2)
  - MULTIPLE INJURIES [None]
  - THERAPEUTIC AGENT TOXICITY [None]
